FAERS Safety Report 4366360-5 (Version None)
Quarter: 2004Q2

REPORT INFORMATION
  Report Type: 
  Country: None (occurrence: None)
  Receive Date: 20040527
  Receipt Date: 20040102
  Transmission Date: 20050107
  Serious: Yes (Hospitalization)
  Sender: FDA-Public Use
  Company Number: US-GLAXOSMITHKLINE-A0490974A

PATIENT
  Age: 73 Year
  Sex: Female

DRUGS (6)
  1. ALBUTEROL [Suspect]
     Indication: ASTHMA
     Dosage: 1PUFF TWICE PER DAY
     Route: 055
  2. ADVAIR DISKUS 100/50 [Suspect]
     Indication: ASTHMA
     Dosage: 1PUFF TWICE PER DAY
     Route: 055
     Dates: start: 20021201
  3. TIAZAC [Concomitant]
  4. ALBUTEROL [Concomitant]
  5. CLONIDINE HCL [Concomitant]
  6. WARFARIN SODIUM [Concomitant]

REACTIONS (2)
  - ATRIAL FIBRILLATION [None]
  - VISUAL DISTURBANCE [None]
